FAERS Safety Report 14475945 (Version 4)
Quarter: 2018Q2

REPORT INFORMATION
  Report Type: Spontaneous
  Country: US (occurrence: US)
  Receive Date: 20180201
  Receipt Date: 20180425
  Transmission Date: 20180711
  Serious: Yes (Hospitalization, Other)
  Sender: FDA-Public Use
  Company Number: US-PFIZER INC-2018042582

PATIENT
  Age: 76 Year
  Sex: Female
  Weight: 57 kg

DRUGS (4)
  1. AROMASIN [Suspect]
     Active Substance: EXEMESTANE
     Indication: BREAST CANCER
     Dosage: 25 MG, 1X/DAY
     Dates: start: 201501
  2. GABAPENTIN. [Concomitant]
     Active Substance: GABAPENTIN
     Indication: ARTHRITIS
     Dosage: 100 MG, 3X/DAY
     Route: 048
     Dates: start: 201408
  3. AROMASIN [Suspect]
     Active Substance: EXEMESTANE
     Dosage: 25 MG, 1X/DAY
     Dates: start: 201602
  4. AROMASIN [Suspect]
     Active Substance: EXEMESTANE
     Indication: PROPHYLAXIS
     Dosage: 25 MG, 1X/DAY
     Dates: start: 2016

REACTIONS (2)
  - Patella fracture [Not Recovered/Not Resolved]
  - Fall [Not Recovered/Not Resolved]

NARRATIVE: CASE EVENT DATE: 20180119
